FAERS Safety Report 25193688 (Version 1)
Quarter: 2025Q2

REPORT INFORMATION
  Report Type: Spontaneous
  Country: US (occurrence: None)
  Receive Date: 20250411
  Receipt Date: 20250411
  Transmission Date: 20250716
  Serious: No
  Sender: FDA-CTU
  Company Number: None

PATIENT

DRUGS (2)
  1. LINZESS [Suspect]
     Active Substance: LINACLOTIDE
  2. MOTEGRITY [Suspect]
     Active Substance: PRUCALOPRIDE SUCCINATE

REACTIONS (1)
  - Diarrhoea [None]
